FAERS Safety Report 4433233-9 (Version None)
Quarter: 2004Q3

REPORT INFORMATION
  Report Type: 
  Country: None (occurrence: None)
  Receive Date: 20040824
  Receipt Date: 20040809
  Transmission Date: 20050211
  Serious: Yes (Hospitalization)
  Sender: FDA-Public Use
  Company Number: 8623

PATIENT
  Age: 59 Year
  Sex: Male

DRUGS (1)
  1. AMIODARONE [Suspect]
     Indication: ATRIAL FIBRILLATION

REACTIONS (5)
  - HEART TRANSPLANT [None]
  - HEPATOTOXICITY [None]
  - HYPERTHYROIDISM [None]
  - INTERLEUKIN LEVEL INCREASED [None]
  - PAPILLARY THYROID CANCER [None]
